FAERS Safety Report 6893434-7 (Version None)
Quarter: 2010Q3

REPORT INFORMATION
  Report Type: 
  Country: None (occurrence: None)
  Receive Date: 20100731
  Receipt Date: 20090914
  Transmission Date: 20110219
  Serious: No
  Sender: FDA-Public Use
  Company Number: US-PFIZER INC-2009237409

PATIENT
  Sex: Female

DRUGS (1)
  1. ANTIVERT [Suspect]
     Indication: VERTIGO
     Dosage: 25 MG, 3X/DAY
     Dates: start: 20050101, end: 20090401

REACTIONS (1)
  - HEADACHE [None]
